FAERS Safety Report 19925279 (Version 2)
Quarter: 2021Q4

REPORT INFORMATION
  Report Type: Spontaneous
  Country: US (occurrence: US)
  Receive Date: 20211006
  Receipt Date: 20211116
  Transmission Date: 20220303
  Serious: Yes (Hospitalization)
  Sender: FDA-Public Use
  Company Number: US-TAKEDA-2021TUS060494

PATIENT
  Sex: Male
  Weight: 160 kg

DRUGS (8)
  1. GATTEX [Suspect]
     Active Substance: TEDUGLUTIDE\WATER
     Indication: Metabolic surgery
     Dosage: UNK
     Route: 065
     Dates: start: 20210730
  2. GATTEX [Suspect]
     Active Substance: TEDUGLUTIDE\WATER
     Indication: Metabolic surgery
     Dosage: UNK
     Route: 065
     Dates: start: 20210730
  3. GATTEX [Suspect]
     Active Substance: TEDUGLUTIDE\WATER
     Indication: Metabolic surgery
     Dosage: UNK
     Route: 065
     Dates: start: 20210730
  4. GATTEX [Suspect]
     Active Substance: TEDUGLUTIDE\WATER
     Indication: Metabolic surgery
     Dosage: UNK
     Route: 065
     Dates: start: 20210730
  5. GATTEX [Suspect]
     Active Substance: TEDUGLUTIDE\WATER
     Indication: Hernia
  6. GATTEX [Suspect]
     Active Substance: TEDUGLUTIDE\WATER
     Indication: Hernia
  7. GATTEX [Suspect]
     Active Substance: TEDUGLUTIDE\WATER
     Indication: Hernia
  8. GATTEX [Suspect]
     Active Substance: TEDUGLUTIDE\WATER
     Indication: Hernia

REACTIONS (3)
  - Post procedural complication [Unknown]
  - Blood alkaline phosphatase increased [Unknown]
  - Blood bilirubin increased [Unknown]
